FAERS Safety Report 7089069-6 (Version None)
Quarter: 2010Q4

REPORT INFORMATION
  Report Type: 
  Country: None (occurrence: None)
  Receive Date: 20101108
  Receipt Date: 20101029
  Transmission Date: 20110411
  Serious: Yes (Hospitalization)
  Sender: FDA-Public Use
  Company Number: B0682254A

PATIENT
  Sex: Female
  Weight: 48 kg

DRUGS (35)
  1. ALKERAN [Suspect]
     Indication: STEM CELL TRANSPLANT
     Dosage: 140MG PER DAY
     Route: 042
     Dates: start: 20070802, end: 20070802
  2. NEUTROGIN [Concomitant]
     Dates: start: 20070804, end: 20070812
  3. KN 3B [Concomitant]
     Dosage: 2IUAX PER DAY
     Route: 042
     Dates: start: 20070801, end: 20070807
  4. KN 3B [Concomitant]
     Dosage: 2IUAX PER DAY
     Route: 042
     Dates: start: 20070803, end: 20070803
  5. KN 3B [Concomitant]
     Dosage: 2IUAX PER DAY
     Route: 042
     Dates: start: 20070822, end: 20070823
  6. ZOMETA [Concomitant]
     Dosage: 1IUAX PER DAY
     Route: 042
     Dates: start: 20070801, end: 20070801
  7. ISOTONIC SODIUM CHLORIDE [Concomitant]
     Dosage: 2IUAX PER DAY
     Route: 042
     Dates: start: 20070802, end: 20070802
  8. KYTRIL [Concomitant]
     Dosage: 1IUAX PER DAY
     Route: 042
     Dates: start: 20070802, end: 20070803
  9. MEYLON [Concomitant]
     Dosage: 2IUAX PER DAY
     Route: 042
     Dates: start: 20070802, end: 20070802
  10. SOLU-CORTEF [Concomitant]
     Dosage: 1IUAX PER DAY
     Dates: start: 20070803, end: 20070803
  11. HAPTOGLOBIN [Concomitant]
     Dosage: 2IUAX PER DAY
     Route: 042
     Dates: start: 20070803, end: 20070803
  12. IMMUNE GLOBULIN INTRAVENOUS (HUMAN) [Concomitant]
     Dosage: 1IUAX PER DAY
     Route: 042
     Dates: start: 20070803, end: 20070803
  13. MAXIPIME [Concomitant]
     Dosage: 4IUAX PER DAY
     Route: 042
     Dates: start: 20070807, end: 20070809
  14. AMIKACIN SULFATE [Concomitant]
     Dosage: 2IUAX PER DAY
     Dates: start: 20070808, end: 20070812
  15. CLIDAMACIN [Concomitant]
     Dosage: 2IUAX PER DAY
     Dates: start: 20070809, end: 20070814
  16. CLIDAMACIN [Concomitant]
     Dosage: 3IUAX PER DAY
     Dates: start: 20070815, end: 20070827
  17. IMIPENEM AND CILASTATIN [Concomitant]
     Dosage: 4IUAX PER DAY
     Dates: start: 20070810, end: 20070814
  18. IMIPENEM AND CILASTATIN [Concomitant]
     Dosage: 3IUAX PER DAY
     Dates: start: 20070815, end: 20070823
  19. FUNGUARD [Concomitant]
     Dosage: 3IUAX PER DAY
     Route: 042
     Dates: start: 20070809, end: 20070814
  20. IMMUNE GLOBULIN INTRAVENOUS (HUMAN) [Concomitant]
     Dosage: 2IUAX PER DAY
     Route: 042
     Dates: start: 20070809, end: 20070810
  21. IMMUNE GLOBULIN INTRAVENOUS (HUMAN) [Concomitant]
     Dosage: 1IUAX PER DAY
     Route: 042
     Dates: start: 20070811, end: 20070811
  22. PHYSIO 35 [Concomitant]
     Dosage: 2IUAX PER DAY
     Route: 042
     Dates: start: 20070808, end: 20070822
  23. HEPARIN SODIUM [Concomitant]
     Dosage: 1IUAX PER DAY
     Route: 042
     Dates: start: 20070808, end: 20070822
  24. GASTER D [Concomitant]
     Dosage: 20MG PER DAY
     Route: 048
     Dates: start: 20070801
  25. MAGMITT [Concomitant]
     Dosage: 990MG PER DAY
     Route: 048
     Dates: start: 20070801, end: 20070809
  26. LENDORMIN [Concomitant]
     Dosage: .25MG PER DAY
     Route: 048
     Dates: start: 20070801
  27. CRAVIT [Concomitant]
     Dosage: 300MG PER DAY
     Route: 048
     Dates: start: 20070802, end: 20070822
  28. DIFLUCAN [Concomitant]
     Dosage: 200MG PER DAY
     Route: 048
     Dates: start: 20070802, end: 20070809
  29. FUNGIZONE [Concomitant]
     Dosage: 50ML PER DAY
     Route: 048
     Dates: start: 20070802, end: 20070809
  30. ZOVIRAX [Concomitant]
     Dosage: 1000MG PER DAY
     Route: 048
     Dates: start: 20070802
  31. ISCOTIN [Concomitant]
     Dosage: 200MG PER DAY
     Route: 048
     Dates: start: 20070802
  32. WARFARIN [Concomitant]
     Dosage: 2MG PER DAY
     Route: 048
     Dates: start: 20070823
  33. ITRIZOLE [Concomitant]
     Dosage: 200MG PER DAY
     Route: 048
     Dates: start: 20070816
  34. MINOCYCLINE HCL [Concomitant]
     Dosage: 200MG PER DAY
     Route: 048
     Dates: start: 20070828, end: 20070903
  35. BAKTAR [Concomitant]
     Dosage: 2IUAX PER DAY
     Route: 048
     Dates: start: 20070828, end: 20070903

REACTIONS (3)
  - BRONCHOPNEUMONIA [None]
  - C-REACTIVE PROTEIN INCREASED [None]
  - PYREXIA [None]
